FAERS Safety Report 7395434-X (Version None)
Quarter: 2011Q1

REPORT INFORMATION
  Report Type: 
  Country: None (occurrence: None)
  Receive Date: 20110331
  Receipt Date: 20110331
  Transmission Date: 20110831
  Serious: No
  Sender: FDA-Public Use
  Company Number: None

PATIENT
  Sex: Female
  Weight: 90.7194 kg

DRUGS (5)
  1. ALBUTEROL PRN [Concomitant]
  2. ATIVAN PRN [Concomitant]
  3. LAMACTIL [Concomitant]
  4. PULMICORT [Concomitant]
  5. PRISTIQ [Suspect]
     Indication: BIPOLAR II DISORDER
     Dosage: 100 MG 1 PER DAY PO
     Route: 048
     Dates: start: 20110104, end: 20110328

REACTIONS (1)
  - INTERSTITIAL LUNG DISEASE [None]
